FAERS Safety Report 21972949 (Version 1)
Quarter: 2023Q1

REPORT INFORMATION
  Report Type: Spontaneous
  Country: CA (occurrence: CA)
  Receive Date: 20230209
  Receipt Date: 20230209
  Transmission Date: 20230418
  Serious: Yes (Hospitalization, Other)
  Sender: FDA-Public Use
  Company Number: CA-BAYER-2023P008655

PATIENT
  Age: 26 Year
  Sex: Female

DRUGS (6)
  1. YASMIN [Suspect]
     Active Substance: DROSPIRENONE\ETHINYL ESTRADIOL
     Dosage: 84 TABLETS
     Route: 048
     Dates: start: 20080616, end: 20081114
  2. YASMIN [Suspect]
     Active Substance: DROSPIRENONE\ETHINYL ESTRADIOL
     Dosage: 28 TABLETS
     Route: 048
     Dates: start: 20110113, end: 20110515
  3. MIDAZOLAM [Concomitant]
     Active Substance: MIDAZOLAM
  4. FENTANYL [Concomitant]
     Active Substance: FENTANYL
  5. GLUCAGON [Concomitant]
     Active Substance: GLUCAGON
     Dosage: UNK
     Route: 042
  6. XYLOCAINE [Concomitant]
     Active Substance: LIDOCAINE HYDROCHLORIDE

REACTIONS (2)
  - Cholelithiasis [Unknown]
  - Pancreatitis acute [Unknown]

NARRATIVE: CASE EVENT DATE: 20110605
